FAERS Safety Report 6484965-2 (Version None)
Quarter: 2009Q4

REPORT INFORMATION
  Report Type: 
  Country: None (occurrence: None)
  Receive Date: 20091203
  Receipt Date: 20091127
  Transmission Date: 20100525
  Serious: Yes (Disabling, Other)
  Sender: FDA-Public Use
  Company Number: 2009SP038649

PATIENT
  Age: 18 Year
  Sex: Male

DRUGS (1)
  1. DESLORATADINE [Suspect]
     Indication: DRUG USE FOR UNKNOWN INDICATION
     Dosage: 5 MG;PRN;PO
     Route: 048

REACTIONS (1)
  - GRAND MAL CONVULSION [None]
